FAERS Safety Report 4333428-9 (Version None)
Quarter: 2004Q1

REPORT INFORMATION
  Report Type: 
  Country: None (occurrence: None)
  Receive Date: 20040330
  Receipt Date: 20040319
  Transmission Date: 20041129
  Serious: Yes (Hospitalization)
  Sender: FDA-Public Use
  Company Number: 205398

PATIENT
  Age: 53 Year
  Sex: Female
  Weight: 72.1 kg

DRUGS (10)
  1. XOLAIR [Suspect]
     Indication: ASTHMA
     Dates: start: 20040122, end: 20040210
  2. PREDNISONE [Concomitant]
  3. PRILOSEC [Concomitant]
  4. VIOXX [Concomitant]
  5. LEVOXYL [Concomitant]
  6. FOSAMAX [Concomitant]
  7. SINGULAIR [Concomitant]
  8. SEREVENT DISKUS (SALMETEROL XINAFOATE) [Concomitant]
  9. FLOVENT [Concomitant]
  10. ADVAIR DISKUS [Concomitant]

REACTIONS (12)
  - ACIDOSIS [None]
  - ACUTE RESPIRATORY FAILURE [None]
  - ASTHMA [None]
  - BACK PAIN [None]
  - BLOOD POTASSIUM DECREASED [None]
  - BUNDLE BRANCH BLOCK LEFT [None]
  - DRUG INEFFECTIVE [None]
  - ESCHERICHIA URINARY TRACT INFECTION [None]
  - HEADACHE [None]
  - MYALGIA [None]
  - SINUS TACHYCARDIA [None]
  - SOMNOLENCE [None]
